FAERS Safety Report 6814618-X (Version None)
Quarter: 2010Q3

REPORT INFORMATION
  Report Type: 
  Country: None (occurrence: None)
  Receive Date: 20100702
  Receipt Date: 20100630
  Transmission Date: 20110219
  Serious: Yes (Hospitalization)
  Sender: FDA-Public Use
  Company Number: BE-PFIZER INC-2008155820

PATIENT
  Age: 67 Year
  Sex: Female
  Weight: 68 kg

DRUGS (12)
  1. *ERLOTINIB [Suspect]
     Indication: NON-SMALL CELL LUNG CANCER
     Dosage: 150 MG, 1X/DAY
     Route: 048
     Dates: start: 20081120, end: 20081215
  2. BLINDED *NO SUBJECT DRUG [Suspect]
     Indication: NON-SMALL CELL LUNG CANCER
     Dosage: 37.5 MG, 1X/DAY
     Route: 048
     Dates: start: 20081120, end: 20081215
  3. BLINDED *PLACEBO [Suspect]
     Indication: NON-SMALL CELL LUNG CANCER
     Dosage: 37.5 MG, 1X/DAY
     Route: 048
     Dates: start: 20081120, end: 20081215
  4. SUNITINIB MALATE [Suspect]
     Indication: NON-SMALL CELL LUNG CANCER
     Dosage: 37.5 MG, 1X/DAY
     Route: 048
     Dates: start: 20081120, end: 20081215
  5. ALLOPURINOL [Concomitant]
     Dosage: UNK
     Dates: start: 20040101
  6. SIMVASTATIN [Concomitant]
     Dosage: UNK
     Dates: start: 20040101
  7. REPAGLINIDE [Concomitant]
     Dosage: UNK
     Dates: start: 20080102
  8. NEBIVOLOL [Concomitant]
     Dosage: UNK
     Dates: start: 20040101
  9. TIOTROPIUM [Concomitant]
     Dosage: UNK
     Dates: start: 20070601
  10. ENOXAPARIN SODIUM [Concomitant]
     Dosage: UNK
     Dates: start: 20081113
  11. SERETIDE [Concomitant]
     Dosage: UNK
     Dates: start: 20070601
  12. HYDROCHLOROTHIAZIDE W/CILAZAPRIL [Concomitant]
     Dosage: UNK
     Dates: start: 20040101, end: 20081214

REACTIONS (1)
  - GENERAL PHYSICAL HEALTH DETERIORATION [None]
